FAERS Safety Report 7565002-5 (Version None)
Quarter: 2011Q2

REPORT INFORMATION
  Report Type: 
  Country: None (occurrence: None)
  Receive Date: 20110622
  Receipt Date: 20110427
  Transmission Date: 20111010
  Serious: Yes (Other)
  Sender: FDA-Public Use
  Company Number: US-MYLANLABS-2011S1006000

PATIENT
  Age: 52 Year
  Sex: Female

DRUGS (14)
  1. TRAZODONE HCL [Concomitant]
  2. LAMICTAL [Concomitant]
  3. ZYPREXA [Concomitant]
  4. DEPAKOTE ER [Concomitant]
  5. CLOZAPINE [Suspect]
     Dates: start: 20110420
  6. LEVOTHYROXINE SODIUM [Concomitant]
  7. PLENDIL [Concomitant]
  8. MELATONIN [Concomitant]
  9. COGENTIN [Concomitant]
  10. FOSAMAX [Concomitant]
  11. CLOZAPINE [Suspect]
     Dates: end: 20110414
  12. PROTONIX [Concomitant]
  13. KLONOPIN [Concomitant]
  14. POTASSIUM [Concomitant]

REACTIONS (1)
  - GRANULOCYTOPENIA [None]
